FAERS Safety Report 15773008 (Version 5)
Quarter: 2020Q2

REPORT INFORMATION
  Report Type: Report from Study
  Country: None (occurrence: NO)
  Receive Date: 20181228
  Receipt Date: 20200616
  Transmission Date: 20200713
  Serious: Yes (Other)
  Sender: FDA-Public Use
  Company Number: NO-ABBVIE-18P-122-2598250-00

PATIENT
  Age: 65 Year
  Sex: Female

DRUGS (32)
  1. VENETOCLAX. [Suspect]
     Active Substance: VENETOCLAX
     Indication: PLASMA CELL MYELOMA
     Dosage: DOSE PRIOR TO AE 11DEC2018,PRIOR TO 2ND EPISODE OF NEUTROPENIA 9JAN2019,DAYS1-28
     Route: 048
     Dates: start: 20181114, end: 20190109
  2. IMODIUM [Concomitant]
     Active Substance: LOPERAMIDE HYDROCHLORIDE
     Indication: PROPHYLAXIS
     Route: 048
     Dates: start: 20181114, end: 20181206
  3. TRIMETHOPRIM. [Concomitant]
     Active Substance: TRIMETHOPRIM
     Indication: INFECTION
     Route: 042
     Dates: start: 20190223, end: 20190225
  4. COTRIMOXAZOLE [Concomitant]
     Active Substance: SULFAMETHOXAZOLE\TRIMETHOPRIM
     Indication: INFECTION
     Route: 042
     Dates: start: 20190223, end: 20190223
  5. CEFOTAXIME [Concomitant]
     Active Substance: CEFOTAXIME SODIUM
     Indication: INFECTION
     Route: 042
     Dates: start: 20190214, end: 20190218
  6. ALCOHOL. [Concomitant]
     Active Substance: ALCOHOL
     Indication: INFECTION
     Route: 065
     Dates: start: 20190223, end: 20190223
  7. CEFTAZIDIME PENTAHYDRATE [Concomitant]
     Active Substance: CEFTAZIDIME
     Indication: INFECTION
     Route: 042
     Dates: start: 20190227, end: 20190324
  8. PENOMAX [Concomitant]
     Active Substance: PIVMECILLINAM HYDROCHLORIDE
     Indication: URINARY TRACT INFECTION
     Route: 048
     Dates: start: 20181212, end: 20181219
  9. CYKLOKAPRON [Concomitant]
     Active Substance: TRANEXAMIC ACID
     Indication: HAEMORRHAGE
     Route: 048
     Dates: start: 20190123
  10. SULFAMETHOXAZOLE [Concomitant]
     Active Substance: SULFAMETHOXAZOLE
     Indication: INFECTION
     Route: 042
     Dates: start: 20190223, end: 20190225
  11. COTRIMOXAZOLE [Concomitant]
     Active Substance: SULFAMETHOXAZOLE\TRIMETHOPRIM
     Route: 042
     Dates: start: 20190225
  12. PROPYLENGLYCOLUM [Concomitant]
     Indication: PRODUCT USED FOR UNKNOWN INDICATION
     Route: 042
     Dates: start: 20190223, end: 20190223
  13. COBIMETINIB. [Suspect]
     Active Substance: COBIMETINIB
     Indication: PLASMA CELL MYELOMA
     Dosage: DAY 1-21 OF EACH 28 DAY CYCLE. DOSE PRIOR TO AE:  04DEC2018, 2ND EPISODE 29JAN2019.
     Route: 048
     Dates: start: 20181114
  14. ALBYL-E [Concomitant]
     Active Substance: ASPIRIN\MAGNESIUM OXIDE
     Indication: PROPHYLAXIS
     Route: 048
     Dates: start: 20170220, end: 20181126
  15. ZARZIO [Concomitant]
     Active Substance: FILGRASTIM
     Indication: NEUTROPHIL COUNT DECREASED
     Route: 058
     Dates: start: 20181219, end: 20181219
  16. SOMAC [Concomitant]
     Active Substance: PANTOPRAZOLE SODIUM
     Indication: PROPHYLAXIS
     Route: 048
     Dates: start: 20170220, end: 20181115
  17. SOMAC [Concomitant]
     Active Substance: PANTOPRAZOLE SODIUM
     Route: 048
     Dates: start: 20181209
  18. ALCOHOL. [Concomitant]
     Active Substance: ALCOHOL
     Route: 065
     Dates: start: 20190225
  19. ACIKLOVIR [Concomitant]
     Indication: INFECTION
     Route: 042
     Dates: start: 20190228, end: 20190314
  20. ALBYL-E [Concomitant]
     Active Substance: ASPIRIN\MAGNESIUM OXIDE
     Route: 048
     Dates: start: 20181207, end: 20181211
  21. ZOMETA [Concomitant]
     Active Substance: ZOLEDRONIC ACID
     Indication: PROPHYLAXIS
     Route: 042
     Dates: start: 201701
  22. PROPYLENGLYCOLUM [Concomitant]
     Route: 042
     Dates: start: 20190225
  23. ANIDULAFUNGIN [Concomitant]
     Active Substance: ANIDULAFUNGIN
     Indication: INFECTION
     Route: 042
     Dates: start: 20190307, end: 20190321
  24. SOMAC [Concomitant]
     Active Substance: PANTOPRAZOLE SODIUM
     Route: 048
     Dates: start: 20181126, end: 20181208
  25. LEVAXIN [Concomitant]
     Active Substance: LEVOTHYROXINE SODIUM
     Indication: HYPOTHYROIDISM
     Route: 048
  26. ZOFRAN [Concomitant]
     Active Substance: ONDANSETRON HYDROCHLORIDE
     Indication: PROPHYLAXIS
     Route: 048
     Dates: start: 20181114
  27. ARANESP [Concomitant]
     Active Substance: DARBEPOETIN ALFA
     Indication: ANAEMIA
     Route: 058
     Dates: start: 20181128, end: 20190109
  28. LOCOID [Concomitant]
     Active Substance: HYDROCORTISONE BUTYRATE
     Indication: RASH
     Dates: start: 20190109
  29. EURAX [Concomitant]
     Active Substance: CROTAMITON
     Indication: PRURITUS
     Dates: start: 20190109
  30. MEROPENEM. [Concomitant]
     Active Substance: MEROPENEM
     Indication: INFECTION
     Route: 042
     Dates: start: 20190221, end: 20190227
  31. PIPERACILLIN. [Concomitant]
     Active Substance: PIPERACILLIN SODIUM
     Indication: INFECTION
     Route: 042
     Dates: start: 20190218, end: 20190221
  32. FLUKONAZOL [Concomitant]
     Active Substance: FLUCONAZOLE
     Indication: INFECTION
     Route: 042
     Dates: start: 20190302, end: 20190307

REACTIONS (2)
  - Neutrophil count decreased [Not Recovered/Not Resolved]
  - Thrombocytopenia [Not Recovered/Not Resolved]

NARRATIVE: CASE EVENT DATE: 20181114
